FAERS Safety Report 9380657 (Version 1)
Quarter: 2013Q3

REPORT INFORMATION
  Report Type: Spontaneous
  Country: JP (occurrence: JP)
  Receive Date: 20130702
  Receipt Date: 20130702
  Transmission Date: 20140515
  Serious: Yes (Death)
  Sender: FDA-Public Use
  Company Number: JP-ELI_LILLY_AND_COMPANY-JP201305007860

PATIENT
  Age: 76 Year
  Sex: Female

DRUGS (1)
  1. ADCIRCA [Suspect]
     Indication: PULMONARY ARTERIAL WEDGE PRESSURE INCREASED
     Dosage: 20 UNK, UNK
     Route: 048
     Dates: start: 20130422

REACTIONS (2)
  - Interstitial lung disease [Fatal]
  - Off label use [Unknown]
